FAERS Safety Report 13600840 (Version 1)
Quarter: 2017Q2

REPORT INFORMATION
  Report Type: Report from Study
  Country: IT (occurrence: IT)
  Receive Date: 20170601
  Receipt Date: 20170601
  Transmission Date: 20170830
  Serious: Yes (Hospitalization, Other)
  Sender: FDA-Public Use
  Company Number: IT-AUROBINDO-AUR-APL-2017-34863

PATIENT
  Sex: Female

DRUGS (1)
  1. PAROXETINE 20MG [Suspect]
     Active Substance: PAROXETINE
     Indication: PRODUCT USED FOR UNKNOWN INDICATION
     Dosage: 20 MG, UNK
     Route: 064

REACTIONS (9)
  - Bradycardia [Recovered/Resolved]
  - Apgar score low [Recovered/Resolved]
  - Hypoglycaemia [Recovered/Resolved]
  - Neonatal respiratory distress syndrome [Recovered/Resolved]
  - Hyporeflexia [Recovered/Resolved]
  - Premature baby [Unknown]
  - Neonatal behavioural syndrome [Recovered/Resolved]
  - Hypotonia [Recovered/Resolved]
  - Foetal exposure during pregnancy [Unknown]
